FAERS Safety Report 25289856 (Version 1)
Quarter: 2025Q2

REPORT INFORMATION
  Report Type: Spontaneous
  Country: US (occurrence: US)
  Receive Date: 20250509
  Receipt Date: 20250509
  Transmission Date: 20250716
  Serious: No
  Sender: BRISTOL-MYERS SQUIBB COMPANY
  Company Number: US-BRISTOL-MYERS SQUIBB COMPANY-2025-067576

PATIENT
  Age: 74 Year
  Sex: Male

DRUGS (1)
  1. LENALIDOMIDE [Suspect]
     Active Substance: LENALIDOMIDE
     Indication: Plasma cell myeloma
     Route: 048

REACTIONS (6)
  - Pain [Recovering/Resolving]
  - Arthralgia [Recovering/Resolving]
  - Nervousness [Recovering/Resolving]
  - Tremor [Recovering/Resolving]
  - Ageusia [Recovering/Resolving]
  - Decreased appetite [Recovering/Resolving]
